FAERS Safety Report 9167008 (Version 1)
Quarter: 2013Q1

REPORT INFORMATION
  Report Type: Spontaneous
  Country: US (occurrence: US)
  Receive Date: 20130317
  Receipt Date: 20130317
  Transmission Date: 20140127
  Serious: No
  Sender: FDA-Public Use
  Company Number: US-TEVA-390696USA

PATIENT
  Sex: Female

DRUGS (1)
  1. QNASL [Suspect]

REACTIONS (1)
  - Incorrect route of drug administration [Unknown]
